FAERS Safety Report 8652288 (Version 3)
Quarter: 2013Q2

REPORT INFORMATION
  Report Type: Report from Study
  Country: IT (occurrence: IT)
  Receive Date: 20120706
  Receipt Date: 20130514
  Transmission Date: 20140414
  Serious: Yes (Other)
  Sender: FDA-Public Use
  Company Number: IT-ROCHE-1024628

PATIENT
  Age: 75 Year
  Sex: Male
  Weight: 70 kg

DRUGS (6)
  1. BEVACIZUMAB [Suspect]
     Indication: GLIOBLASTOMA
     Route: 042
     Dates: start: 20100621
  2. IRINOTECAN [Suspect]
     Indication: GLIOBLASTOMA
     Route: 042
     Dates: start: 20100621, end: 20110930
  3. LOMUSTINE [Suspect]
     Indication: GLIOBLASTOMA
     Route: 048
     Dates: start: 20120607
  4. LEVETIRACETAM [Concomitant]
     Indication: GLIOBLASTOMA
     Route: 048
     Dates: start: 20090701
  5. LAROXYL [Concomitant]
     Indication: GLIOBLASTOMA
     Route: 048
     Dates: start: 20110920
  6. LUCEN [Concomitant]
     Indication: GLIOBLASTOMA
     Route: 048
     Dates: start: 20110701

REACTIONS (3)
  - Bradycardia [Unknown]
  - Atrioventricular block [Unknown]
  - Hypertension [Recovered/Resolved]
